FAERS Safety Report 6112763-8 (Version None)
Quarter: 2009Q1

REPORT INFORMATION
  Report Type: 
  Country: None (occurrence: None)
  Receive Date: 20090312
  Receipt Date: 20090304
  Transmission Date: 20090719
  Serious: Yes (Other)
  Sender: FDA-Public Use
  Company Number: US-AMGEN-QUU334921

PATIENT
  Sex: Female

DRUGS (2)
  1. ENBREL [Suspect]
     Indication: PSORIATIC ARTHROPATHY
     Route: 058
     Dates: start: 20050831
  2. ENBREL [Suspect]
     Indication: PSORIASIS

REACTIONS (5)
  - CYSTOCELE [None]
  - FATIGUE [None]
  - PSORIASIS [None]
  - UTERINE PROLAPSE [None]
  - VAGINAL HAEMORRHAGE [None]
